FAERS Safety Report 11857996 (Version 1)
Quarter: 2015Q4

REPORT INFORMATION
  Report Type: Spontaneous
  Country: US (occurrence: None)
  Receive Date: 20151221
  Receipt Date: 20151221
  Transmission Date: 20160305
  Serious: No
  Sender: FDA-Public Use
  Company Number: None

PATIENT
  Age: 64 Year
  Sex: Female

DRUGS (17)
  1. TRAMADL/APAP [Concomitant]
  2. ADVAIR DISKU AER [Concomitant]
  3. JAKAFI [Concomitant]
     Active Substance: RUXOLITINIB
  4. OMNITROPE [Suspect]
     Active Substance: SOMATROPIN
     Indication: ENDOCRINE DISORDER
     Route: 058
     Dates: start: 20150918
  5. MULTI VIT [Concomitant]
  6. PREDNISONE SOL [Concomitant]
  7. ATENOLOL. [Concomitant]
     Active Substance: ATENOLOL
  8. LIPITOR [Concomitant]
     Active Substance: ATORVASTATIN CALCIUM
  9. TRICOR [Concomitant]
     Active Substance: FENOFIBRATE
  10. TAMSULOSIN [Concomitant]
     Active Substance: TAMSULOSIN
  11. FUROSEMIDE. [Concomitant]
     Active Substance: FUROSEMIDE
  12. NIASPAN [Concomitant]
     Active Substance: NIACIN
  13. PREDNISOLONE SUS [Concomitant]
  14. MIDODRINE [Concomitant]
     Active Substance: MIDODRINE
  15. TRIAMT/HCTZ [Concomitant]
     Active Substance: HYDROCHLOROTHIAZIDE\TRIAMTERENE
  16. ASPIR LOW [Concomitant]
     Active Substance: ASPIRIN
  17. FISH OIL [Concomitant]
     Active Substance: FISH OIL

REACTIONS (1)
  - Feeling hot [None]

NARRATIVE: CASE EVENT DATE: 201512
